FAERS Safety Report 24543101 (Version 1)
Quarter: 2024Q4

REPORT INFORMATION
  Report Type: Spontaneous
  Country: IN (occurrence: IN)
  Receive Date: 20241024
  Receipt Date: 20241024
  Transmission Date: 20250115
  Serious: Yes (Other)
  Sender: AMGEN
  Company Number: IN-AMGEN-INDSP2024207139

PATIENT
  Age: 14 Year
  Sex: Female

DRUGS (9)
  1. FILGRASTIM [Suspect]
     Active Substance: FILGRASTIM
     Indication: Pancytopenia
     Dosage: 300 MICROGRAM, QD ( (FOR 6 DAYS)
     Route: 040
  2. FILGRASTIM [Suspect]
     Active Substance: FILGRASTIM
     Indication: Off label use
  3. METHYLPREDNISOLONE [Concomitant]
     Active Substance: METHYLPREDNISOLONE
     Dosage: 500 MILLIGRAM, QD (FOR 3 DAYS)
  4. METHYLPREDNISOLONE [Concomitant]
     Active Substance: METHYLPREDNISOLONE
     Dosage: 1 GRAM, QD (FOR 3 DAYS)
  5. DEXAMETHASONE [Concomitant]
     Active Substance: DEXAMETHASONE
     Dosage: 6 MILLIGRAM, QD
     Route: 040
  6. CYCLOPHOSPHAMIDE [Concomitant]
     Active Substance: CYCLOPHOSPHAMIDE
     Dosage: 450 MILLIGRAM (LOW DOSE )
  7. ETOPOSIDE [Concomitant]
     Active Substance: ETOPOSIDE
     Dosage: 220 MILLIGRAM
     Route: 040
  8. Immunoglobulin [Concomitant]
     Dosage: 1 GRAM PER KILOGRAM (FOR 2 DAYS)
  9. CYCLOSPORINE [Concomitant]
     Active Substance: CYCLOSPORINE
     Dosage: 2 MILLIGRAM/KILOGRAM, QD

REACTIONS (2)
  - Lupus nephritis [Recovering/Resolving]
  - Off label use [Unknown]
